FAERS Safety Report 8354168-5 (Version None)
Quarter: 2012Q2

REPORT INFORMATION
  Report Type: 
  Country: None (occurrence: None)
  Receive Date: 20120511
  Receipt Date: 20120504
  Transmission Date: 20120825
  Serious: Yes (Hospitalization)
  Sender: FDA-Public Use
  Company Number: US-ASTRAZENECA-2010SE11549

PATIENT
  Age: 56 Year
  Sex: Male
  Weight: 92.5 kg

DRUGS (7)
  1. CRESTOR [Suspect]
     Indication: BLOOD CHOLESTEROL INCREASED
     Route: 048
     Dates: start: 20050901, end: 20100214
  2. ALDACTONE [Concomitant]
     Route: 065
  3. LOVAZZA [Concomitant]
     Route: 065
  4. ATACAND [Concomitant]
     Route: 048
  5. LANTUS [Concomitant]
     Route: 065
  6. VICTOZA [Concomitant]
     Route: 065
  7. METFORMIN HCL [Concomitant]
     Route: 065

REACTIONS (7)
  - MYALGIA [None]
  - FLANK PAIN [None]
  - HYPONATRAEMIA [None]
  - LOW DENSITY LIPOPROTEIN DECREASED [None]
  - DEHYDRATION [None]
  - ELECTROLYTE IMBALANCE [None]
  - WEIGHT DECREASED [None]
